FAERS Safety Report 21569652 (Version 2)
Quarter: 2022Q4

REPORT INFORMATION
  Report Type: Report from Study
  Country: US (occurrence: US)
  Receive Date: 20221109
  Receipt Date: 20221115
  Transmission Date: 20230112
  Serious: Yes (Death)
  Sender: FDA-Public Use
  Company Number: US-ABBVIE-4192621

PATIENT
  Sex: Male

DRUGS (8)
  1. VENCLEXTA [Suspect]
     Active Substance: VENETOCLAX
     Indication: Neoplasm malignant
     Dosage: THEN 3 TABLETS BY MOUTH ON DAY THREE?FORM STRENGTH: 100MG
     Route: 048
  2. VENCLEXTA [Suspect]
     Active Substance: VENETOCLAX
     Indication: Neoplasm malignant
     Dosage: TAKE ONE TABLET BY MOUTH ON DAY ONE?FORM STRENGTH: 100MG
     Route: 048
  3. VENCLEXTA [Suspect]
     Active Substance: VENETOCLAX
     Indication: Neoplasm malignant
     Dosage: TWO TABLETS ON DAY TWO?FORM STRENGTH: 100MG
     Route: 048
  4. VENCLEXTA [Suspect]
     Active Substance: VENETOCLAX
     Indication: Neoplasm malignant
     Dosage: THEN 4 TABLETS BY MOUTH DAILY THEREAFTER?FORM STRENGTH: 100MG
     Route: 048
     Dates: start: 20220822
  5. VENCLEXTA [Suspect]
     Active Substance: VENETOCLAX
     Indication: Neoplasm malignant
     Dosage: 100 TO 400 MG RAMP UP
     Route: 048
     Dates: start: 20220822
  6. ALLOPURINOL [Concomitant]
     Active Substance: ALLOPURINOL
     Indication: Product used for unknown indication
     Route: 048
  7. DACOGEN [Concomitant]
     Active Substance: DECITABINE
     Indication: Product used for unknown indication
     Dosage: 20MG/M2 DAY 1-5, 12 CYCLES
     Route: 042
     Dates: start: 20220822
  8. ATIVAN [Concomitant]
     Active Substance: LORAZEPAM
     Indication: Product used for unknown indication
     Dosage: TAKE 1 TABLET 30 MIN PRIOR TO PROCEDURE. IF NO EFFECT CAN TAKE 2ND TABLET?FORM STRENGTH: 0.5 MG
     Route: 048

REACTIONS (2)
  - Death [Fatal]
  - Off label use [Unknown]
